FAERS Safety Report 9632751 (Version 4)
Quarter: 2013Q4

REPORT INFORMATION
  Report Type: Spontaneous
  Country: DE (occurrence: DE)
  Receive Date: 20131018
  Receipt Date: 20131202
  Transmission Date: 20140711
  Serious: Yes (Death)
  Sender: FDA-Public Use
  Company Number: DE-GLAXOSMITHKLINE-D0081465A

PATIENT
  Age: 76 Year
  Sex: Female
  Weight: 53 kg

DRUGS (6)
  1. BENLYSTA [Suspect]
     Indication: SYSTEMIC LUPUS ERYTHEMATOSUS
     Dosage: 520MG AS DIRECTED
     Route: 042
     Dates: start: 20120208, end: 20120608
  2. BELOC-ZOK MITE [Concomitant]
     Indication: HYPERTENSION
     Dosage: 12MG PER DAY
     Route: 048
  3. DIOVAN [Concomitant]
     Indication: HYPERTENSION
     Dosage: 80MG PER DAY
     Route: 048
     Dates: start: 201111
  4. CALCIUM + VITAMIN D3 [Concomitant]
     Indication: OSTEOPOROSIS
     Dosage: 1000MG PER DAY
     Route: 048
     Dates: start: 201111
  5. NOVALGIN [Concomitant]
     Indication: SYSTEMIC LUPUS ERYTHEMATOSUS
     Dosage: 1G PER DAY
     Route: 065
     Dates: start: 20120710
  6. LASIX [Concomitant]
     Indication: SYSTEMIC LUPUS ERYTHEMATOSUS
     Route: 048
     Dates: start: 20120708

REACTIONS (7)
  - Cardiomyopathy [Fatal]
  - Systemic lupus erythematosus [Fatal]
  - Dyspnoea [Unknown]
  - Pleural effusion [Unknown]
  - Cardiomegaly [Unknown]
  - Pericardial effusion [Unknown]
  - Cardiac failure [Fatal]
